FAERS Safety Report 8422402-9 (Version None)
Quarter: 2012Q2

REPORT INFORMATION
  Report Type: 
  Country: None (occurrence: None)
  Receive Date: 20120608
  Receipt Date: 20120604
  Transmission Date: 20120825
  Serious: Yes (Other)
  Sender: FDA-Public Use
  Company Number: PHHY2010JP86569

PATIENT
  Sex: Male

DRUGS (13)
  1. LAXOBERON [Concomitant]
     Indication: PROPHYLAXIS
     Route: 048
     Dates: start: 20101027
  2. TASIGNA [Suspect]
     Indication: CHRONIC MYELOID LEUKAEMIA
     Dosage: 800 MG, DAILY
     Route: 048
     Dates: start: 20100325, end: 20100330
  3. TASIGNA [Suspect]
     Dosage: 400 MG, DAILY
     Route: 048
     Dates: start: 20100818
  4. LANSOPRAZOLE [Concomitant]
     Indication: PROPHYLAXIS
     Dosage: 1 DF, UNK
     Route: 048
     Dates: start: 20100616, end: 20100803
  5. RHYTHMY [Concomitant]
     Indication: PROPHYLAXIS
     Dosage: 1 MG, UNK
     Route: 048
     Dates: start: 20101027, end: 20110217
  6. MAGNESIUM OXIDE [Concomitant]
     Indication: PROPHYLAXIS
     Dosage: 0.99 G, UNK
     Route: 048
     Dates: start: 20100929, end: 20101026
  7. ALLEGRA [Concomitant]
     Indication: PROPHYLAXIS
     Dosage: 120 MG, UNK
     Route: 048
     Dates: start: 20100616
  8. LANSOPRAZOLE [Concomitant]
     Dosage: 1 DF, UNK
     Route: 048
  9. AMARYL [Concomitant]
     Indication: DIABETES MELLITUS
     Dosage: 1 MG, UNK
     Route: 048
     Dates: start: 20100707
  10. TASIGNA [Suspect]
     Dosage: 800 MG, DAILY
     Route: 048
     Dates: start: 20100616, end: 20100720
  11. ALLEGRA [Concomitant]
     Dosage: 120 MG, UNK
     Route: 048
  12. AMARYL [Concomitant]
     Dosage: 2 MG, UNK
     Route: 048
  13. LANSOPRAZOLE [Concomitant]
     Dosage: 1 DF, UNK
     Route: 048
     Dates: end: 20110319

REACTIONS (5)
  - ERYTHEMA [None]
  - CONSTIPATION [None]
  - PLATELET COUNT DECREASED [None]
  - RASH [None]
  - LIPASE INCREASED [None]
